FAERS Safety Report 16980274 (Version 2)
Quarter: 2020Q1

REPORT INFORMATION
  Report Type: Spontaneous
  Country: US (occurrence: US)
  Receive Date: 20191031
  Receipt Date: 20200110
  Transmission Date: 20200409
  Serious: Yes (Hospitalization, Other)
  Sender: FDA-Public Use
  Company Number: US-ASTRAZENECA-2019SF51688

PATIENT
  Age: 17207 Day
  Sex: Male
  Weight: 100.7 kg

DRUGS (8)
  1. FARXIGA [Suspect]
     Active Substance: DAPAGLIFLOZIN PROPANEDIOL
     Indication: TYPE 2 DIABETES MELLITUS
     Route: 048
     Dates: start: 20190920, end: 20191005
  2. ELIQUIS [Concomitant]
     Active Substance: APIXABAN
     Indication: THROMBOSIS
     Dates: start: 20191002
  3. GABAPENTIN. [Concomitant]
     Active Substance: GABAPENTIN
     Indication: PAIN
     Dosage: 300 MG IN THE MORNING AND 600 MG AT NIGHT
     Route: 048
     Dates: start: 2018
  4. TOUJEO/ GLARGINE [Concomitant]
     Indication: TYPE 2 DIABETES MELLITUS
     Dosage: SINCE 6 MONTHS AGO
     Route: 058
  5. COLLAGEN [Concomitant]
     Active Substance: COLLAGEN
     Indication: SUPPLEMENTATION THERAPY
  6. B12 SUPPLEMENT [Concomitant]
     Indication: SUPPLEMENTATION THERAPY
  7. METFORMIN ER [Concomitant]
     Active Substance: METFORMIN HYDROCHLORIDE
     Indication: TYPE 2 DIABETES MELLITUS
     Dosage: 1000MEQ/L TWO TIMES A DAY
     Route: 048
     Dates: start: 2018
  8. ATORVASTATIN [Concomitant]
     Active Substance: ATORVASTATIN
     Indication: ILL-DEFINED DISORDER
     Route: 048
     Dates: start: 201811

REACTIONS (6)
  - Pain [Unknown]
  - Deep vein thrombosis [Unknown]
  - Thirst [Unknown]
  - Pulmonary embolism [Unknown]
  - Headache [Unknown]
  - Malaise [Unknown]

NARRATIVE: CASE EVENT DATE: 20191002
